FAERS Safety Report 7346281-6 (Version None)
Quarter: 2011Q1

REPORT INFORMATION
  Report Type: 
  Country: None (occurrence: None)
  Receive Date: 20110311
  Receipt Date: 20110301
  Transmission Date: 20110831
  Serious: No
  Sender: FDA-Public Use
  Company Number: US-PFIZER INC-2011049448

PATIENT
  Age: 33 Year
  Sex: Female
  Weight: 109 kg

DRUGS (3)
  1. PRENATAL VITAMINS [Concomitant]
     Dosage: UNK
     Dates: start: 20090518, end: 20091229
  2. LABETALOL [Suspect]
     Dosage: 200 MG, 2X/DAY
  3. PROCARDIA [Suspect]
     Indication: HYPERTENSION
     Dosage: UNK
     Dates: start: 20090518, end: 20090615

REACTIONS (1)
  - HEADACHE [None]
